FAERS Safety Report 14419270 (Version 1)
Quarter: 2018Q1

REPORT INFORMATION
  Report Type: Spontaneous
  Country: PK (occurrence: PK)
  Receive Date: 20180122
  Receipt Date: 20180122
  Transmission Date: 20180509
  Serious: Yes (Hospitalization, Congenital Anomaly, Other)
  Sender: FDA-Public Use
  Company Number: PK-TELIGENT, INC-IGIL20180037

PATIENT
  Sex: Female

DRUGS (1)
  1. ZANTAC [Suspect]
     Active Substance: RANITIDINE HYDROCHLORIDE
     Indication: PRODUCT USED FOR UNKNOWN INDICATION
     Route: 065

REACTIONS (5)
  - Maternal exposure during pregnancy [Unknown]
  - Foetal death [Unknown]
  - Hypotension [Unknown]
  - Foetal growth restriction [Unknown]
  - Pruritus generalised [Unknown]
